FAERS Safety Report 6402715-2 (Version None)
Quarter: 2009Q4

REPORT INFORMATION
  Report Type: 
  Country: None (occurrence: None)
  Receive Date: 20091013
  Receipt Date: 20090918
  Transmission Date: 20100525
  Serious: Yes (Hospitalization)
  Sender: FDA-Public Use
  Company Number: KV200900768

PATIENT
  Age: 30 Year
  Sex: Female

DRUGS (1)
  1. MORPHINE SULFATE [Suspect]
     Indication: BACK PAIN
     Dosage: 30 MG, QID, ORAL
     Route: 048
     Dates: start: 20080201, end: 20080201

REACTIONS (2)
  - IMPAIRED DRIVING ABILITY [None]
  - OVERDOSE [None]
